FAERS Safety Report 18511889 (Version 2)
Quarter: 2020Q4

REPORT INFORMATION
  Report Type: Spontaneous
  Country: FR (occurrence: FR)
  Receive Date: 20201117
  Receipt Date: 20201121
  Transmission Date: 20210114
  Serious: Yes (Hospitalization)
  Sender: FDA-Public Use
  Company Number: NVSC2020FR300312

PATIENT
  Age: 75 Year
  Sex: Female
  Weight: 70 kg

DRUGS (10)
  1. BACTRIM [Suspect]
     Active Substance: SULFAMETHOXAZOLE\TRIMETHOPRIM
     Indication: INFECTION PROPHYLAXIS
     Dosage: 3 DF, QW
     Route: 048
     Dates: start: 20200811, end: 20200911
  2. CANDESARTAN CILEXETIL. [Concomitant]
     Active Substance: CANDESARTAN CILEXETIL
     Indication: HYPERTENSION
     Dosage: 8 MG,QD
     Route: 048
  3. LONQUEX [Concomitant]
     Active Substance: LIPEGFILGRASTIM
     Indication: CYCLIC NEUTROPENIA
     Dosage: 1 DF, CYCLIC
     Route: 058
     Dates: start: 20200811
  4. RITUXIMAB. [Suspect]
     Active Substance: RITUXIMAB
     Indication: CHRONIC LYMPHOCYTIC LEUKAEMIA
     Dosage: 630 MG, CYCLIC
     Route: 042
     Dates: start: 20200907, end: 20200907
  5. VALACICLOVIR [Suspect]
     Active Substance: VALACYCLOVIR HYDROCHLORIDE
     Indication: INFECTION PROPHYLAXIS
     Dosage: 1000 MG,QD
     Route: 048
     Dates: start: 20200811, end: 20200911
  6. VALACICLOVIR [Suspect]
     Active Substance: VALACYCLOVIR HYDROCHLORIDE
     Dosage: 1000 MG
     Route: 048
     Dates: start: 20200916
  7. EPORATIO [Concomitant]
     Active Substance: ERYTHROPOIETIN
     Indication: ANAEMIA
     Dosage: 3000 UNK,QW
     Route: 058
     Dates: start: 20200811
  8. EPORATIO [Concomitant]
     Active Substance: ERYTHROPOIETIN
     Route: 058
     Dates: start: 20200811
  9. CRESTOR [Concomitant]
     Active Substance: ROSUVASTATIN CALCIUM
     Indication: DYSLIPIDAEMIA
     Dosage: 10 MG,QD
     Route: 048
  10. BENDAMUSTINE HYDROCHLORIDE. [Suspect]
     Active Substance: BENDAMUSTINE HYDROCHLORIDE
     Indication: CHRONIC LYMPHOCYTIC LEUKAEMIA
     Dosage: 151 MG, CYCLIC
     Route: 042
     Dates: start: 20200810, end: 20200908

REACTIONS (1)
  - Erythema [Recovered/Resolved]

NARRATIVE: CASE EVENT DATE: 20200909
